FAERS Safety Report 6928549-8 (Version None)
Quarter: 2010Q3

REPORT INFORMATION
  Report Type: 
  Country: None (occurrence: None)
  Receive Date: 20100817
  Receipt Date: 20100810
  Transmission Date: 20110219
  Serious: Yes (Hospitalization)
  Sender: FDA-Public Use
  Company Number: US-WYE-H16847410

PATIENT
  Age: 76 Year
  Sex: Female

DRUGS (1)
  1. PREMARIN [Suspect]
     Indication: UNEVALUABLE EVENT
     Dosage: UNKNOWN
     Route: 065

REACTIONS (1)
  - CARDIAC OPERATION [None]
